FAERS Safety Report 7957664-5 (Version None)
Quarter: 2011Q4

REPORT INFORMATION
  Report Type: 
  Country: None (occurrence: None)
  Receive Date: 20111205
  Receipt Date: 20111124
  Transmission Date: 20120403
  Serious: Yes (Other)
  Sender: FDA-Public Use
  Company Number: PHFR2011GB006780

PATIENT
  Sex: Male

DRUGS (1)
  1. CLOZARIL [Suspect]
     Indication: SCHIZOPHRENIA
     Route: 048
     Dates: start: 20070724, end: 20111004

REACTIONS (4)
  - SEXUAL DYSFUNCTION [None]
  - CONSTIPATION [None]
  - SEDATION [None]
  - URINARY INCONTINENCE [None]
